FAERS Safety Report 20796742 (Version 2)
Quarter: 2022Q2

REPORT INFORMATION
  Report Type: Spontaneous
  Country: US (occurrence: None)
  Receive Date: 20220506
  Receipt Date: 20220623
  Transmission Date: 20220721
  Serious: Yes (Other)
  Sender: FDA-Public Use
  Company Number: US-Merck Healthcare KGaA-9318203

PATIENT
  Age: 63 Year
  Sex: Female

DRUGS (7)
  1. REBIF [Suspect]
     Active Substance: INTERFERON BETA-1A
     Indication: Multiple sclerosis
  2. REBIF [Suspect]
     Active Substance: INTERFERON BETA-1A
     Indication: Insomnia
  3. TERIFLUNOMIDE [Suspect]
     Active Substance: TERIFLUNOMIDE
     Indication: Multiple sclerosis
     Dates: start: 20210407, end: 20210827
  4. CLONAZEPAM [Suspect]
     Active Substance: CLONAZEPAM
     Indication: Insomnia
  5. VUMERITY [Suspect]
     Active Substance: DIROXIMEL FUMARATE
     Indication: Product used for unknown indication
  6. PLEGRIDY [Suspect]
     Active Substance: PEGINTERFERON BETA-1A
     Indication: Diarrhoea
  7. TOPAMAX [Suspect]
     Active Substance: TOPIRAMATE
     Indication: Cataract

REACTIONS (7)
  - Cataract [Recovered/Resolved]
  - Abdominal pain upper [Recovered/Resolved]
  - Diarrhoea [Not Recovered/Not Resolved]
  - Relapsing-remitting multiple sclerosis [Not Recovered/Not Resolved]
  - Muscle spasms [Unknown]
  - Insomnia [Unknown]
  - Off label use [Not Recovered/Not Resolved]
